FAERS Safety Report 24656645 (Version 1)
Quarter: 2024Q4

REPORT INFORMATION
  Report Type: Report from Study
  Country: CO (occurrence: CO)
  Receive Date: 20241124
  Receipt Date: 20241124
  Transmission Date: 20250115
  Serious: Yes (Death)
  Sender: ABBVIE
  Company Number: CO-JNJFOC-20241149541

PATIENT
  Age: 80 Year
  Sex: Male
  Weight: 49 kg

DRUGS (1)
  1. IMBRUVICA [Suspect]
     Active Substance: IBRUTINIB
     Indication: Chronic lymphocytic leukaemia
     Dosage: STRENGHT TEXT: 420 MG, LAST ADMIN: NOV 2024
     Route: 048
     Dates: start: 20241105

REACTIONS (1)
  - Death [Fatal]

NARRATIVE: CASE EVENT DATE: 20241119
